FAERS Safety Report 22951930 (Version 2)
Quarter: 2023Q4

REPORT INFORMATION
  Report Type: Report from Study
  Country: US (occurrence: US)
  Receive Date: 20230918
  Receipt Date: 20231025
  Transmission Date: 20240110
  Serious: Yes (Other)
  Sender: FDA-Public Use
  Company Number: US-UCBSA-2023045221

PATIENT
  Age: 69 Year
  Sex: Male
  Weight: 76.19 kg

DRUGS (1)
  1. LEVETIRACETAM [Suspect]
     Active Substance: LEVETIRACETAM
     Indication: Seizure
     Dosage: XR 750MG + XR 500MG - 1T BID

REACTIONS (3)
  - Tonsil cancer [Not Recovered/Not Resolved]
  - Radiotherapy [Recovered/Resolved]
  - Product use issue [Unknown]

NARRATIVE: CASE EVENT DATE: 20221001
